FAERS Safety Report 4577159-9 (Version None)
Quarter: 2005Q1

REPORT INFORMATION
  Report Type: 
  Country: None (occurrence: None)
  Receive Date: 20050208
  Receipt Date: 20050126
  Transmission Date: 20050727
  Serious: Yes (Hospitalization, Other)
  Sender: FDA-Public Use
  Company Number: 2005020565

PATIENT
  Sex: Female

DRUGS (1)
  1. ZITHROMAX [Suspect]
     Indication: ILL-DEFINED DISORDER
     Dosage: 500 MG (250 MG, 1 D)
     Dates: start: 20041227, end: 20041227

REACTIONS (3)
  - FALL [None]
  - SKIN LACERATION [None]
  - SYNCOPE [None]
